FAERS Safety Report 16824218 (Version 2)
Quarter: 2020Q4

REPORT INFORMATION
  Report Type: Spontaneous
  Country: US (occurrence: US)
  Receive Date: 20190918
  Receipt Date: 20201204
  Transmission Date: 20210113
  Serious: Yes (Hospitalization, Other)
  Sender: FDA-Public Use
  Company Number: US-JNJFOC-20190917966

PATIENT
  Age: 81 Year
  Sex: Female
  Weight: 79.45 kg

DRUGS (5)
  1. STELARA [Suspect]
     Active Substance: USTEKINUMAB
     Indication: PSORIASIS
     Route: 058
     Dates: start: 201604
  2. STELARA [Suspect]
     Active Substance: USTEKINUMAB
     Indication: PSORIATIC ARTHROPATHY
  3. MOBIC [Concomitant]
     Active Substance: MELOXICAM
     Indication: ARTHRALGIA
  4. LOSARTAN;RAMIPRIL [Concomitant]
     Indication: HYPERTENSION
  5. TRAMADOL. [Concomitant]
     Active Substance: TRAMADOL
     Indication: ARTHRALGIA

REACTIONS (4)
  - Intraductal proliferative breast lesion [Unknown]
  - Spinal stenosis [Not Recovered/Not Resolved]
  - Neuralgia [Unknown]
  - Arthritis [Unknown]

NARRATIVE: CASE EVENT DATE: 2019
